FAERS Safety Report 10666692 (Version 2)
Quarter: 2014Q4

REPORT INFORMATION
  Report Type: Spontaneous
  Country: US (occurrence: US)
  Receive Date: 20141222
  Receipt Date: 20141229
  Transmission Date: 20150529
  Serious: Yes (Other)
  Sender: FDA-Public Use
  Company Number: US-AMGEN-USASP2014097643

PATIENT
  Age: 30 Year
  Sex: Female

DRUGS (3)
  1. ENBREL [Suspect]
     Active Substance: ETANERCEPT
     Dosage: UNK
     Route: 065
  2. KEFLEX [Suspect]
     Active Substance: CEPHALEXIN
     Indication: CELLULITIS
     Dosage: UNK
     Route: 065
  3. ENBREL [Suspect]
     Active Substance: ETANERCEPT
     Indication: ARTHRITIS
     Dosage: 50 MG, QWK
     Route: 065
     Dates: start: 20140901

REACTIONS (12)
  - Cellulitis [Not Recovered/Not Resolved]
  - Dyspnoea [Recovered/Resolved]
  - Neutrophil count decreased [Recovered/Resolved]
  - Drug hypersensitivity [Not Recovered/Not Resolved]
  - Injection site bruising [Unknown]
  - Gingival swelling [Not Recovered/Not Resolved]
  - Palatal swelling [Not Recovered/Not Resolved]
  - Petechiae [Not Recovered/Not Resolved]
  - Venous injury [Not Recovered/Not Resolved]
  - Bronchitis [Recovered/Resolved]
  - Wheezing [Recovered/Resolved]
  - Dehydration [Recovered/Resolved]

NARRATIVE: CASE EVENT DATE: 201411
